FAERS Safety Report 7723184-6 (Version None)
Quarter: 2011Q3

REPORT INFORMATION
  Report Type: 
  Country: None (occurrence: None)
  Receive Date: 20110901
  Receipt Date: 20110824
  Transmission Date: 20111222
  Serious: Yes (Other)
  Sender: FDA-Public Use
  Company Number: JP-ASTELLAS-2011JP005950

PATIENT

DRUGS (8)
  1. ITRACONAZOLE [Concomitant]
     Dosage: 200 MG, UNKNOWN/D
     Route: 065
  2. PROGRAF [Suspect]
     Indication: PROPHYLAXIS AGAINST GRAFT VERSUS HOST DISEASE
     Dosage: 0.02 MG/KG, UNKNOWN/D
     Route: 041
  3. METHOTREXATE [Concomitant]
     Dosage: 10 MG, UNKNOWN/D
     Route: 042
  4. OMEPRAZOLE [Concomitant]
     Dosage: 20 MG, UNKNOWN/D
     Route: 065
  5. METHOTREXATE [Concomitant]
     Indication: PROPHYLAXIS AGAINST GRAFT VERSUS HOST DISEASE
     Dosage: 15 MG, UNKNOWN/D
     Route: 042
  6. CIPROFLOXACIN [Concomitant]
     Dosage: 400 MG, UNKNOWN/D
     Route: 065
  7. ACYCLOVIR [Concomitant]
     Dosage: 500 MG, UNKNOWN/D
     Route: 065
  8. METHOTREXATE [Concomitant]
     Dosage: 10 MG, UNKNOWN/D
     Route: 042

REACTIONS (2)
  - ACUTE GRAFT VERSUS HOST DISEASE [None]
  - DRUG INEFFECTIVE [None]
